FAERS Safety Report 7059622-4 (Version None)
Quarter: 2010Q4

REPORT INFORMATION
  Report Type: 
  Country: None (occurrence: None)
  Receive Date: 20101025
  Receipt Date: 20101014
  Transmission Date: 20110411
  Serious: Yes (Hospitalization)
  Sender: FDA-Public Use
  Company Number: SE-ASTRAZENECA-2010SE48574

PATIENT
  Age: 68 Year
  Sex: Male

DRUGS (11)
  1. NAROPIN [Suspect]
     Dosage: 6-8 ML/H
     Route: 008
     Dates: start: 20100924, end: 20100927
  2. SELOKEN ZOC [Concomitant]
  3. ALVEDON [Concomitant]
  4. OXYCODONE HCL [Concomitant]
  5. OXYCONTIN [Concomitant]
  6. LAKTULOS ALTERNOVA [Concomitant]
  7. FRAGMIN [Concomitant]
  8. WARAN [Concomitant]
     Route: 065
  9. CLOXACILLIN SODIUM [Concomitant]
  10. CYKLOKAPRON [Concomitant]
  11. SUFENTA PRESERVATIVE FREE [Concomitant]

REACTIONS (1)
  - SENSORY DISTURBANCE [None]
